FAERS Safety Report 8272535 (Version 6)
Quarter: 2019Q3

REPORT INFORMATION
  Report Type: Report from Study
  Country: PL (occurrence: PL)
  Receive Date: 20111202
  Receipt Date: 20190714
  Transmission Date: 20191005
  Serious: Yes (Hospitalization)
  Sender: FDA-Public Use
  Company Number: PL-UCBSA-046362

PATIENT
  Age: 52 Year
  Sex: Male
  Weight: 83.3 kg

DRUGS (8)
  1. KETOPROFEN. [Concomitant]
     Active Substance: KETOPROFEN
     Indication: AXIAL SPONDYLOARTHRITIS
     Dosage: 100 MG, 3X/DAY (TID)
     Dates: start: 20110427
  2. ANAFRANIL [Concomitant]
     Active Substance: CLOMIPRAMINE HYDROCHLORIDE
     Indication: DEPRESSION
     Dosage: 75 MG, 3X/DAY (TID)
     Dates: start: 2009
  3. CHLORPROTIXEN [Concomitant]
     Active Substance: CHLORPROTHIXENE HYDROCHLORIDE
     Indication: DEPRESSION
     Dosage: 15 MG, ONCE DAILY (QD)
     Dates: start: 2009
  4. DEPAKINE CHRONO [Concomitant]
     Active Substance: VALPROATE SODIUM
     Indication: DEPRESSION
     Dosage: 300 MG, 3X/DAY (TID)
     Dates: start: 2009
  5. CERTOLIZUMAB PEGOL VS PLACEBO [Suspect]
     Active Substance: CERTOLIZUMAB PEGOL
     Indication: AXIAL SPONDYLOARTHRITIS
     Dosage: 200 MG
     Route: 058
     Dates: start: 20101020, end: 20111028
  6. DEPAKINE CHRONO [Concomitant]
     Active Substance: VALPROATE SODIUM
     Indication: DEPRESSION
  7. PRESTARIUM [Concomitant]
     Active Substance: PERINDOPRIL
     Indication: HYPERTENSION
     Dosage: 10 MG, ONCE DAILY (QD)
     Dates: start: 2005
  8. BISOCARD [Concomitant]
     Active Substance: BISOPROLOL
     Indication: HYPERTENSION
     Dosage: 5 MG, ONCE DAILY (QD)
     Dates: start: 2005

REACTIONS (1)
  - Cholesterol granuloma [Recovered/Resolved]

NARRATIVE: CASE EVENT DATE: 20110912
